FAERS Safety Report 5194128-9 (Version None)
Quarter: 2006Q4

REPORT INFORMATION
  Report Type: 
  Country: None (occurrence: None)
  Receive Date: 20061220
  Receipt Date: 20061211
  Transmission Date: 20070319
  Serious: Yes (Death, Other)
  Sender: FDA-Public Use
  Company Number: HQWYE942313DEC06

PATIENT
  Age: 20 Year
  Sex: Female

DRUGS (13)
  1. EFFEXOR [Suspect]
  2. BEXTRA [Suspect]
  3. CLONAPIN (CLONAZEPAM) [Suspect]
  4. DARVOCET-N 50 [Suspect]
  5. DEPAKOTE [Suspect]
  6. LAMITOL (LABETALOL HYDROCHLORIDE) [Suspect]
  7. PAXIL [Suspect]
  8. SEROQUEL [Suspect]
  9. TRIMOX [Suspect]
  10. VICODIN [Suspect]
  11. VIOXX [Suspect]
  12. ZOLOFT [Suspect]
  13. ZYPREXA [Suspect]

REACTIONS (11)
  - BURNS SECOND DEGREE [None]
  - BURNS THIRD DEGREE [None]
  - CARDIAC DISORDER [None]
  - COMPLETED SUICIDE [None]
  - DRUG DEPENDENCE [None]
  - DRUG INTERACTION POTENTIATION [None]
  - DRUG TOXICITY [None]
  - DRUG WITHDRAWAL SYNDROME [None]
  - INJURY ASPHYXIATION [None]
  - PSYCHOTIC DISORDER [None]
  - SELF INJURIOUS BEHAVIOUR [None]
